FAERS Safety Report 13831098 (Version 1)
Quarter: 2017Q3

REPORT INFORMATION
  Report Type: Spontaneous
  Country: TH (occurrence: TH)
  Receive Date: 20170803
  Receipt Date: 20170803
  Transmission Date: 20171127
  Serious: Yes (Other)
  Sender: FDA-Public Use
  Company Number: TH-BAYER-2017-146880

PATIENT

DRUGS (2)
  1. NEXAVAR [Suspect]
     Active Substance: SORAFENIB
     Dosage: 800 MG
     Dates: start: 201503, end: 201508
  2. NEXAVAR [Suspect]
     Active Substance: SORAFENIB
     Dosage: 400 MG DAILY
     Dates: start: 201509

REACTIONS (4)
  - Blood bilirubin increased [None]
  - Alpha 1 foetoprotein increased [None]
  - Palmar-plantar erythrodysaesthesia syndrome [None]
  - Disease progression [None]
